FAERS Safety Report 22325707 (Version 1)
Quarter: 2023Q2

REPORT INFORMATION
  Report Type: Spontaneous
  Country: US (occurrence: None)
  Receive Date: 20230516
  Receipt Date: 20230516
  Transmission Date: 20230721
  Serious: No
  Sender: FDA-Public Use
  Company Number: 2023A106540

PATIENT

DRUGS (1)
  1. FARXIGA [Suspect]
     Active Substance: DAPAGLIFLOZIN PROPANEDIOL
     Indication: Kidney small
     Route: 048

REACTIONS (14)
  - Illness [Unknown]
  - Adverse drug reaction [Unknown]
  - Decreased appetite [Unknown]
  - Weight decreased [Unknown]
  - Arthralgia [Unknown]
  - Pyrexia [Unknown]
  - Bacterial test positive [Unknown]
  - Vaginal infection [Unknown]
  - Dizziness [Unknown]
  - Chills [Unknown]
  - Hyperhidrosis [Unknown]
  - Asthenia [Unknown]
  - Dysphagia [Unknown]
  - Product use issue [Unknown]
